FAERS Safety Report 8531531 (Version 2)
Quarter: 2012Q4

REPORT INFORMATION
  Report Type: 
  Country: AR (occurrence: CO)
  Receive Date: 20120426
  Receipt Date: 20120924
  Transmission Date: 20130627
  Serious: Yes (Other)
  Sender: FDA-Public Use
  Company Number: CO-BRISTOL-MYERS SQUIBB COMPANY-16389256

PATIENT
  Age: 47 Year
  Sex: Female

DRUGS (5)
  1. ORENCIA [Suspect]
     Indication: RHEUMATOID ARTHRITIS
     Dosage: No of dose: 4.
     Dates: start: 20120212
  2. HYDROCORTISONE [Suspect]
  3. ARAVA [Suspect]
  4. LYRICA [Concomitant]
  5. MORPHINE [Concomitant]

REACTIONS (16)
  - Osteonecrosis [Unknown]
  - Throat irritation [Unknown]
  - Tongue pruritus [Unknown]
  - Cough [Unknown]
  - Pain in extremity [Unknown]
  - Hypoaesthesia [Unknown]
  - Fibromyalgia [Unknown]
  - Oedema peripheral [Not Recovered/Not Resolved]
  - Pain in extremity [None]
  - Pain in extremity [None]
  - Malaise [None]
  - Discomfort [None]
  - Drug ineffective [None]
  - Hypoaesthesia oral [None]
  - Hypoaesthesia oral [None]
  - Burning sensation [None]
